FAERS Safety Report 6098515-6 (Version None)
Quarter: 2009Q1

REPORT INFORMATION
  Report Type: 
  Country: None (occurrence: None)
  Receive Date: 20090302
  Receipt Date: 20090224
  Transmission Date: 20090719
  Serious: Yes (Death)
  Sender: FDA-Public Use
  Company Number: US-CELGENEUS-163-21880-09011429

PATIENT
  Sex: Female

DRUGS (2)
  1. REVLIMID [Suspect]
     Route: 048
     Dates: start: 20081001, end: 20090115
  2. REVLIMID [Suspect]
     Route: 048
     Dates: start: 20080531, end: 20080901

REACTIONS (1)
  - MYOCARDIAL INFARCTION [None]
